FAERS Safety Report 9365364 (Version 1)
Quarter: 2013Q2

REPORT INFORMATION
  Report Type: Spontaneous
  Country: AU (occurrence: AU)
  Receive Date: 20130625
  Receipt Date: 20130625
  Transmission Date: 20140414
  Serious: Yes (Disabling, Other)
  Sender: FDA-Public Use
  Company Number: AU-PFIZER INC-2013143007

PATIENT
  Age: 69 Year
  Sex: Female
  Weight: 98 kg

DRUGS (14)
  1. LYRICA [Suspect]
     Indication: BACK PAIN
     Dosage: 150 MG, 2X/DAY
     Route: 048
     Dates: start: 20130501
  2. FERRO F [Concomitant]
     Dosage: UNK
  3. IBILEX [Concomitant]
     Dosage: 500 MG, 4X/DAY
  4. ALPRIM [Concomitant]
     Dosage: UNK
  5. NIFEDIPINE [Concomitant]
     Dosage: UNK
  6. ATORVASTATIN [Concomitant]
     Dosage: 20 MG, 1X/DAY
  7. AVAPRO [Concomitant]
     Dosage: 300 MG, 1X/DAY
  8. DIAMICRON MR [Concomitant]
     Dosage: UNK
  9. NOVOMIX [Concomitant]
     Dosage: 30 UNITS MORNING
  10. LANTUS [Concomitant]
     Dosage: 55 UNITS NOCTE
  11. FRUSEMIDE [Concomitant]
     Dosage: HALF TABLET MORNING
  12. CRANBERRY [Concomitant]
     Dosage: UNK
  13. PANADOL OSTEO [Concomitant]
     Dosage: 2 TABLETS THREE TIMEAS A DAY AS NEEDED
  14. PROGOUT [Concomitant]
     Dosage: 100 MG, 1X/DAY

REACTIONS (5)
  - Dysstasia [Recovered/Resolved]
  - Dizziness [Recovered/Resolved]
  - Feeling drunk [Recovered/Resolved]
  - Grip strength decreased [Recovered/Resolved]
  - Bedridden [Recovered/Resolved]
